FAERS Safety Report 6840982-1 (Version None)
Quarter: 2010Q3

REPORT INFORMATION
  Report Type: 
  Country: None (occurrence: None)
  Receive Date: 20100714
  Receipt Date: 20070621
  Transmission Date: 20110219
  Serious: No
  Sender: FDA-Public Use
  Company Number: US-PFIZER INC-2007052625

PATIENT
  Sex: Male
  Weight: 106.81 kg

DRUGS (7)
  1. CHANTIX [Suspect]
     Indication: SMOKING CESSATION THERAPY
     Dates: start: 20070521
  2. ALL OTHER THERAPEUTIC PRODUCTS [Concomitant]
  3. CYMBALTA [Concomitant]
  4. LIPITOR [Concomitant]
  5. LYRICA [Concomitant]
  6. NIASPAN [Concomitant]
  7. ACETYLSALICYLIC ACID [Concomitant]

REACTIONS (5)
  - ABDOMINAL DISCOMFORT [None]
  - ABNORMAL FAECES [None]
  - DISTURBANCE IN ATTENTION [None]
  - FEELING ABNORMAL [None]
  - MENTAL DISORDER [None]
